FAERS Safety Report 19609447 (Version 2)
Quarter: 2021Q3

REPORT INFORMATION
  Report Type: Other
  Country: UY (occurrence: UY)
  Receive Date: 20210726
  Receipt Date: 20210901
  Transmission Date: 20211014
  Serious: No
  Sender: FDA-Public Use
  Company Number: UY-ROCHE-2875245

PATIENT
  Sex: Male

DRUGS (1)
  1. OCRELIZUMAB. [Suspect]
     Active Substance: OCRELIZUMAB
     Indication: PRIMARY PROGRESSIVE MULTIPLE SCLEROSIS
     Route: 042
     Dates: start: 201803

REACTIONS (1)
  - COVID-19 [Recovered/Resolved]
